FAERS Safety Report 9105861 (Version 1)
Quarter: 2013Q1

REPORT INFORMATION
  Report Type: Spontaneous
  Country: US (occurrence: US)
  Receive Date: 20130221
  Receipt Date: 20130221
  Transmission Date: 20140127
  Serious: Yes (Death, Other)
  Sender: FDA-Public Use
  Company Number: US-TEVA-387247USA

PATIENT
  Sex: Male

DRUGS (10)
  1. METOPROLOL [Suspect]
  2. ACIPHEX [Concomitant]
  3. ASPIRIN [Concomitant]
  4. FISH OIL [Concomitant]
  5. LASIX [Concomitant]
  6. GABAPENTIN [Concomitant]
  7. LEVEMIR [Concomitant]
  8. NOVOLOG [Concomitant]
  9. LIPITOR [Concomitant]
  10. LOSARTAN [Concomitant]

REACTIONS (3)
  - Myocardial infarction [Fatal]
  - Chest pain [Unknown]
  - Chest discomfort [Unknown]
